FAERS Safety Report 4797320-8 (Version None)
Quarter: 2005Q4

REPORT INFORMATION
  Report Type: 
  Country: None (occurrence: None)
  Receive Date: 20051011
  Receipt Date: 20051011
  Transmission Date: 20060501
  Serious: Yes (Hospitalization, Other)
  Sender: FDA-Public Use
  Company Number: None

PATIENT
  Age: 81 Year
  Sex: Male
  Weight: 105.7 kg

DRUGS (1)
  1. FOSINOPRIL 40 MG Q DAY [Suspect]
     Indication: HYPERTENSION
     Dosage: [} 1 YEAR  AND ON 40 MG/M2 SINCE 10/0.]

REACTIONS (3)
  - ANGIONEUROTIC OEDEMA [None]
  - SWELLING FACE [None]
  - URTICARIA [None]
